FAERS Safety Report 21136285 (Version 1)
Quarter: 2022Q3

REPORT INFORMATION
  Report Type: Spontaneous
  Country: IN (occurrence: IN)
  Receive Date: 20220727
  Receipt Date: 20220727
  Transmission Date: 20221026
  Serious: Yes (Life-Threatening, Hospitalization, Other)
  Sender: FDA-Public Use
  Company Number: IN-35507-2022-09667

PATIENT
  Age: 7 Year
  Sex: Male

DRUGS (17)
  1. LEVETIRACETAM [Suspect]
     Active Substance: LEVETIRACETAM
     Indication: Partial seizures
     Dosage: 60 MILLIGRAM/KILOGRAM, QD
     Route: 042
  2. LACOSAMIDE [Suspect]
     Active Substance: LACOSAMIDE
     Indication: Partial seizures
     Dosage: 8 MILLIGRAM/KILOGRAM, QD
     Route: 042
  3. LACOSAMIDE [Suspect]
     Active Substance: LACOSAMIDE
     Indication: Status epilepticus
     Dosage: 4 MILLIGRAM/KILOGRAM, QD
     Route: 042
  4. VALPROATE SODIUM [Suspect]
     Active Substance: VALPROATE SODIUM
     Indication: Partial seizures
     Dosage: 60 MILLIGRAM/KILOGRAM, QD
     Route: 042
  5. OXCARBAZEPINE [Suspect]
     Active Substance: OXCARBAZEPINE
     Indication: Partial seizures
     Dosage: 40 MILLIGRAM/KILOGRAM, QD
     Route: 042
  6. METHYLPREDNISOLONE [Suspect]
     Active Substance: METHYLPREDNISOLONE
     Indication: Partial seizures
     Dosage: 30 MILLIGRAM/KILOGRAM, QD
     Route: 042
  7. METHYLPREDNISOLONE [Suspect]
     Active Substance: METHYLPREDNISOLONE
     Indication: Status epilepticus
  8. RITUXIMAB [Suspect]
     Active Substance: RITUXIMAB
     Indication: Status epilepticus
     Dosage: 750 MILLIGRAM/SQ. METER, UNK
     Route: 065
  9. RITUXIMAB [Suspect]
     Active Substance: RITUXIMAB
     Indication: Partial seizures
  10. PHENYTOIN [Suspect]
     Active Substance: PHENYTOIN
     Indication: Partial seizures
     Dosage: 8 MILLIGRAM/KILOGRAM, QD
     Route: 042
  11. CLOBAZAM [Suspect]
     Active Substance: CLOBAZAM
     Indication: Status epilepticus
     Dosage: 1.2 MILLIGRAM/KILOGRAM, QD
     Route: 042
  12. CLOBAZAM [Suspect]
     Active Substance: CLOBAZAM
     Indication: Partial seizures
     Dosage: 0.3 MILLIGRAM/KILOGRAM, QD
     Route: 042
  13. MIDAZOLAM [Suspect]
     Active Substance: MIDAZOLAM
     Indication: Partial seizures
     Dosage: UNK
     Route: 042
  14. HUMAN IMMUNOGLOBULIN G [Suspect]
     Active Substance: HUMAN IMMUNOGLOBULIN G
     Indication: Status epilepticus
     Dosage: 400 MILLIGRAM/KILOGRAM, QD
     Route: 042
  15. HUMAN IMMUNOGLOBULIN G [Suspect]
     Active Substance: HUMAN IMMUNOGLOBULIN G
     Indication: Partial seizures
  16. BRIVARACETAM [Concomitant]
     Active Substance: BRIVARACETAM
     Indication: Partial seizures
     Dosage: 1 MILLIGRAM/KILOGRAM, QD
     Route: 065
  17. BRIVARACETAM [Concomitant]
     Active Substance: BRIVARACETAM
     Indication: Status epilepticus

REACTIONS (1)
  - Drug ineffective [Unknown]
